FAERS Safety Report 8296575-5 (Version None)
Quarter: 2012Q2

REPORT INFORMATION
  Report Type: 
  Country: None (occurrence: None)
  Receive Date: 20120418
  Receipt Date: 20120410
  Transmission Date: 20120825
  Serious: Yes (Other)
  Sender: FDA-Public Use
  Company Number: RU-ELI_LILLY_AND_COMPANY-RU201204002937

PATIENT
  Age: 47 Year
  Sex: Female

DRUGS (3)
  1. BYETTA [Suspect]
     Dosage: 10 UG, UNKNOWN
     Route: 058
     Dates: start: 20111001, end: 20120101
  2. BYETTA [Suspect]
     Indication: TYPE 2 DIABETES MELLITUS
     Dosage: 5 UG, UNKNOWN
     Dates: start: 20110501, end: 20110601
  3. BYETTA [Suspect]
     Dosage: 5 UG, UNKNOWN
     Dates: start: 20110901, end: 20111001

REACTIONS (2)
  - BILE DUCT STONE [None]
  - WEIGHT DECREASED [None]
